FAERS Safety Report 13011621 (Version 1)
Quarter: 2016Q4

REPORT INFORMATION
  Report Type: Spontaneous
  Country: US (occurrence: US)
  Receive Date: 20161209
  Receipt Date: 20161209
  Transmission Date: 20170207
  Serious: No
  Sender: FDA-Public Use
  Company Number: US-JNJFOC-20161108147

PATIENT
  Age: 83 Year
  Sex: Male
  Weight: 79.38 kg

DRUGS (2)
  1. IMODIUM MULTI-SYMPTOM RELIEF [Suspect]
     Active Substance: DIMETHICONE\LOPERAMIDE HYDROCHLORIDE
     Route: 048
  2. IMODIUM MULTI-SYMPTOM RELIEF [Suspect]
     Active Substance: DIMETHICONE\LOPERAMIDE HYDROCHLORIDE
     Indication: PAIN
     Route: 048
     Dates: start: 20161024

REACTIONS (4)
  - Product size issue [Unknown]
  - Product shape issue [Unknown]
  - Product packaging issue [Unknown]
  - Choking sensation [Recovered/Resolved]

NARRATIVE: CASE EVENT DATE: 20161024
